FAERS Safety Report 7338978-9 (Version None)
Quarter: 2011Q1

REPORT INFORMATION
  Report Type: 
  Country: None (occurrence: None)
  Receive Date: 20110308
  Receipt Date: 20110302
  Transmission Date: 20110831
  Serious: Yes (Other)
  Sender: FDA-Public Use
  Company Number: US-AMGEN-USASP2011012255

PATIENT
  Sex: Female

DRUGS (2)
  1. NPLATE [Suspect]
     Indication: THROMBOCYTOPENIA
     Dosage: 750 A?G, UNK
     Dates: start: 20110104, end: 20110125
  2. IMMUNOGLOBULINS [Concomitant]

REACTIONS (2)
  - MYELODYSPLASTIC SYNDROME [None]
  - DRUG INEFFECTIVE [None]
